FAERS Safety Report 5381856-5 (Version None)
Quarter: 2007Q3

REPORT INFORMATION
  Report Type: 
  Country: None (occurrence: None)
  Receive Date: 20070709
  Receipt Date: 20070626
  Transmission Date: 20080115
  Serious: Yes (Hospitalization)
  Sender: FDA-Public Use
  Company Number: JP-ROCHE-503933

PATIENT
  Age: 56 Year
  Sex: Male

DRUGS (2)
  1. COPEGUS [Suspect]
     Route: 048
     Dates: start: 20070530, end: 20070610
  2. PEGASYS [Suspect]
     Route: 058
     Dates: start: 20070530, end: 20070606

REACTIONS (2)
  - OCCULT BLOOD POSITIVE [None]
  - OESOPHAGEAL VARICES HAEMORRHAGE [None]
